FAERS Safety Report 20676883 (Version 1)
Quarter: 2022Q2

REPORT INFORMATION
  Report Type: Other
  Country: US (occurrence: None)
  Receive Date: 20220406
  Receipt Date: 20220406
  Transmission Date: 20220721
  Serious: Yes (Hospitalization)
  Sender: FDA-Public Use
  Company Number: US-ROCHE-3061285

PATIENT
  Age: 54 Year
  Sex: Female
  Weight: 67.13 kg

DRUGS (3)
  1. OCREVUS [Suspect]
     Active Substance: OCRELIZUMAB
     Indication: Relapsing-remitting multiple sclerosis
     Route: 042
  2. ONDANSETRON [Concomitant]
     Active Substance: ONDANSETRON
  3. PFIZER-BIONTECH COVID-19 VACCINE [Concomitant]
     Active Substance: TOZINAMERAN
     Dosage: 2ND DOSE 10/APR/2021.
     Dates: start: 20210320

REACTIONS (2)
  - COVID-19 pneumonia [Unknown]
  - Insomnia [Unknown]

NARRATIVE: CASE EVENT DATE: 20201201
